FAERS Safety Report 18455052 (Version 2)
Quarter: 2020Q4

REPORT INFORMATION
  Report Type: Spontaneous
  Country: IR (occurrence: IR)
  Receive Date: 20201102
  Receipt Date: 20201216
  Transmission Date: 20210114
  Serious: Yes (Death, Other)
  Sender: FDA-Public Use
  Company Number: IR-TAKEDA-2020TEU010238

PATIENT
  Age: 41 Year
  Sex: Female

DRUGS (3)
  1. CHLOROQUINE. [Interacting]
     Active Substance: CHLOROQUINE
     Indication: SUICIDE ATTEMPT
     Dosage: 5000 MILLIGRAM
     Route: 065
  2. COLCHICINE. [Suspect]
     Active Substance: COLCHICINE
     Indication: SUICIDE ATTEMPT
     Dosage: 20 MILLIGRAM
     Route: 065
  3. FEXOFENADINE [Interacting]
     Active Substance: FEXOFENADINE HYDROCHLORIDE
     Indication: SUICIDE ATTEMPT
     Dosage: 4800 MILLIGRAM
     Route: 065

REACTIONS (3)
  - Cardiotoxicity [Fatal]
  - Drug interaction [Fatal]
  - Toxicity to various agents [Fatal]
